FAERS Safety Report 12172602 (Version 2)
Quarter: 2016Q3

REPORT INFORMATION
  Report Type: Report from Study
  Country: BR (occurrence: BR)
  Receive Date: 20160311
  Receipt Date: 20160816
  Transmission Date: 20161109
  Serious: Yes (Other)
  Sender: FDA-Public Use
  Company Number: PHHY2016BR032666

PATIENT
  Sex: Female
  Weight: 52 kg

DRUGS (2)
  1. ACLASTA [Suspect]
     Active Substance: ZOLEDRONIC ACID
     Dosage: UNK
     Route: 065
     Dates: start: 2015
  2. ACLASTA [Suspect]
     Active Substance: ZOLEDRONIC ACID
     Indication: OSTEOPOROSIS
     Dosage: 5 MG, Q12MO
     Route: 042

REACTIONS (8)
  - Sciatica [Unknown]
  - Pain in extremity [Unknown]
  - Body temperature decreased [Unknown]
  - Concomitant disease aggravated [Unknown]
  - Blood pressure decreased [Unknown]
  - Malaise [Unknown]
  - Hypokinesia [Unknown]
  - Gait disturbance [Unknown]
